FAERS Safety Report 5143060-5 (Version None)
Quarter: 2006Q4

REPORT INFORMATION
  Report Type: 
  Country: None (occurrence: None)
  Receive Date: 20061031
  Receipt Date: 20061031
  Transmission Date: 20070319
  Serious: No
  Sender: FDA-Public Use
  Company Number: None

PATIENT
  Sex: Female

DRUGS (1)
  1. ASSURED [Suspect]
     Indication: COUGH
     Dosage: 1 DROP AS NEEDED
     Dates: start: 20061001

REACTIONS (2)
  - MALAISE [None]
  - PHARMACEUTICAL PRODUCT COMPLAINT [None]
